FAERS Safety Report 9086345 (Version 1)
Quarter: 2013Q1

REPORT INFORMATION
  Report Type: Report from Study
  Country: US (occurrence: US)
  Receive Date: 20130131
  Receipt Date: 20130131
  Transmission Date: 20140127
  Serious: No
  Sender: FDA-Public Use
  Company Number: US-ABBOTT-12P-163-1015385-00

PATIENT
  Age: 43 Year
  Sex: Female

DRUGS (12)
  1. HUMIRA [Suspect]
     Indication: COLITIS ULCERATIVE
     Dosage: LOADING DOSE
     Route: 058
     Dates: start: 20121127, end: 20121127
  2. HUMIRA [Suspect]
     Route: 058
  3. TOPAMAX [Concomitant]
     Indication: BIPOLAR DISORDER
     Dosage: 1 TAB AT NIGHT
  4. GEODON [Concomitant]
     Indication: BIPOLAR DISORDER
     Dosage: 1 TAB AT NIGHT
  5. LAMICTAL [Concomitant]
     Indication: BIPOLAR DISORDER
     Dosage: 1 TAB AT NIGHT
  6. LOMOTIL [Concomitant]
     Indication: COLITIS ULCERATIVE
     Dosage: 1 TAB 3 TIMES DAILY, OR AS NEEDED
  7. ASACOL [Concomitant]
     Indication: COLITIS ULCERATIVE
  8. CLONAZEPAM [Concomitant]
     Indication: BIPOLAR DISORDER
     Dosage: AT NIGHT
  9. SEROQUEL [Concomitant]
     Indication: BIPOLAR DISORDER
     Dosage: 1 TAB AT NIGHT
  10. DEPLIN [Concomitant]
     Indication: BIPOLAR DISORDER
     Dosage: 1 TAB AT NIGHT
  11. DEPLIN [Concomitant]
     Indication: COLITIS ULCERATIVE
  12. LEVOXYL [Concomitant]
     Indication: HYPOTHYROIDISM
     Dosage: 2 TABS IN THE MORNING

REACTIONS (6)
  - Pruritus generalised [Not Recovered/Not Resolved]
  - Injection site pruritus [Not Recovered/Not Resolved]
  - Paraesthesia [Not Recovered/Not Resolved]
  - Injection site bruising [Not Recovered/Not Resolved]
  - Dizziness [Not Recovered/Not Resolved]
  - Nausea [Not Recovered/Not Resolved]
